FAERS Safety Report 23314132 (Version 1)
Quarter: 2023Q4

REPORT INFORMATION
  Report Type: Report from Study
  Country: US (occurrence: US)
  Receive Date: 20231219
  Receipt Date: 20231219
  Transmission Date: 20240110
  Serious: Yes (Other)
  Sender: FDA-Public Use
  Company Number: US-MYLANLABS-2023M1134148

PATIENT
  Age: 76 Year
  Sex: Male

DRUGS (5)
  1. LINEZOLID [Suspect]
     Active Substance: LINEZOLID
     Indication: Tuberculosis
     Dosage: 600 MILLIGRAM, QD; RECEIVED UNDER BPAL REGIMEN
     Route: 048
  2. LINEZOLID [Suspect]
     Active Substance: LINEZOLID
     Dosage: 600 MILLIGRAM, 3XW, RECEIVED THREE TIMES A WEEK, UNDER BPAL REGIMEN
     Route: 048
  3. BEDAQUILINE [Concomitant]
     Active Substance: BEDAQUILINE
     Indication: Tuberculosis
     Dosage: 400 MILLIGRAM, 3XW, RECEIVED AT THREE TIMES A WEEK, UNDER BPAL REGIMEN
     Route: 048
  4. BEDAQUILINE [Concomitant]
     Active Substance: BEDAQUILINE
     Dosage: 200 MILLIGRAM, 3XW, RECEIVED AT THREE TIMES A WEEK, UNDER BPAL REGIMEN
     Route: 048
  5. PRETOMANID [Concomitant]
     Active Substance: PRETOMANID
     Indication: Tuberculosis
     Dosage: 200 MILLIGRAM, QD; RECEIVED UNDER BPAL REGIMEN
     Route: 048

REACTIONS (3)
  - Anaemia [Recovered/Resolved]
  - Platelet count decreased [Recovered/Resolved]
  - Drug level decreased [Recovered/Resolved]
